FAERS Safety Report 12565884 (Version 1)
Quarter: 2016Q3

REPORT INFORMATION
  Report Type: Report from Study
  Country: CO (occurrence: CO)
  Receive Date: 20160718
  Receipt Date: 20160718
  Transmission Date: 20161109
  Serious: Yes (Death, Other)
  Sender: FDA-Public Use
  Company Number: PHHY2016CO094126

PATIENT
  Sex: Female

DRUGS (1)
  1. AFINITOR [Suspect]
     Active Substance: EVEROLIMUS
     Indication: BREAST CANCER METASTATIC
     Dosage: 10 MG, QD
     Route: 048
     Dates: start: 20150331

REACTIONS (9)
  - Pain [Unknown]
  - Weight decreased [Unknown]
  - Incoherent [Unknown]
  - Decreased immune responsiveness [Unknown]
  - Breast cancer metastatic [Fatal]
  - Delirium [Unknown]
  - General physical health deterioration [Unknown]
  - Abdominal distension [Unknown]
  - Chromaturia [Unknown]
